FAERS Safety Report 16239907 (Version 1)
Quarter: 2019Q2

REPORT INFORMATION
  Report Type: Spontaneous
  Country: US (occurrence: US)
  Receive Date: 20190425
  Receipt Date: 20190425
  Transmission Date: 20190711
  Serious: Yes (Hospitalization)
  Sender: FDA-Public Use
  Company Number: US-VERTEX PHARMACEUTICALS-2019-003602

PATIENT
  Age: 14 Year
  Sex: Female

DRUGS (6)
  1. CAYSTON [Concomitant]
     Active Substance: AZTREONAM
  2. BACTRIM [Concomitant]
     Active Substance: SULFAMETHOXAZOLE\TRIMETHOPRIM
  3. SYMDEKO [Suspect]
     Active Substance: IVACAFTOR\TEZACAFTOR
     Indication: CYSTIC FIBROSIS
     Dosage: 100MG TEZACAFTOR/150MG IVACAFTOR AM; 150MG IVACAFTOR PM
     Route: 048
  4. TOBRAMYCIN. [Concomitant]
     Active Substance: TOBRAMYCIN
  5. PULMOZYME [Concomitant]
     Active Substance: DORNASE ALFA
  6. CIPROFLOXACIN. [Concomitant]
     Active Substance: CIPROFLOXACIN

REACTIONS (1)
  - Nasal polyps [Unknown]

NARRATIVE: CASE EVENT DATE: 20190416
